FAERS Safety Report 25014421 (Version 1)
Quarter: 2025Q1

REPORT INFORMATION
  Report Type: Report from Study
  Country: US (occurrence: US)
  Receive Date: 20250226
  Receipt Date: 20250226
  Transmission Date: 20250408
  Serious: Yes (Other)
  Sender: ABBVIE
  Company Number: US-ABBVIE-6144249

PATIENT
  Age: 59 Year
  Sex: Male

DRUGS (1)
  1. SKYRIZI [Suspect]
     Active Substance: RISANKIZUMAB-RZAA
     Indication: Crohn^s disease
     Route: 058
     Dates: start: 20240520

REACTIONS (5)
  - Neoplasm malignant [Not Recovered/Not Resolved]
  - Swelling [Unknown]
  - Lymphadenopathy [Unknown]
  - Immunodeficiency [Unknown]
  - Human papillomavirus reactivation [Unknown]

NARRATIVE: CASE EVENT DATE: 20241101
